FAERS Safety Report 8382557 (Version 4)
Quarter: 2015Q1

REPORT INFORMATION
  Report Type: Report from Study
  Country: US (occurrence: US)
  Receive Date: 20120201
  Receipt Date: 20150226
  Transmission Date: 20150721
  Serious: Yes (Death)
  Sender: FDA-Public Use
  Company Number: US-ROCHE-1035124

PATIENT
  Age: 57 Year
  Sex: Male
  Weight: 84.54 kg

DRUGS (8)
  1. AVASTIN [Suspect]
     Active Substance: BEVACIZUMAB
     Indication: BRAIN NEOPLASM MALIGNANT
     Route: 042
  2. AVASTIN [Suspect]
     Active Substance: BEVACIZUMAB
     Indication: GLIOBLASTOMA MULTIFORME
     Route: 042
     Dates: start: 20080507
  3. ZOFRAN [Concomitant]
     Active Substance: ONDANSETRON HYDROCHLORIDE
  4. DILANTIN [Concomitant]
     Active Substance: PHENYTOIN
  5. IRINOTECAN [Suspect]
     Active Substance: IRINOTECAN
     Indication: GLIOBLASTOMA MULTIFORME
     Route: 042
     Dates: start: 20080507
  6. DECADRON [Concomitant]
     Active Substance: DEXAMETHASONE
     Route: 065
  7. TEMODAR [Concomitant]
     Active Substance: TEMOZOLOMIDE
     Route: 065
  8. ATROPIN [Concomitant]

REACTIONS (10)
  - Frustration [Unknown]
  - Asthenia [Unknown]
  - Oedema peripheral [Unknown]
  - Contusion [Unknown]
  - Glioblastoma multiforme [Fatal]
  - Fall [Unknown]
  - Diarrhoea [Unknown]
  - Depression [Unknown]
  - Anger [Unknown]
  - Off label use [Unknown]

NARRATIVE: CASE EVENT DATE: 20080820
